FAERS Safety Report 5739054-9 (Version None)
Quarter: 2008Q2

REPORT INFORMATION
  Report Type: 
  Country: None (occurrence: None)
  Receive Date: 20080515
  Receipt Date: 20080506
  Transmission Date: 20081010
  Serious: Yes (Hospitalization)
  Sender: FDA-Public Use
  Company Number: FR-GILEAD-2008-0016360

PATIENT
  Sex: Male
  Weight: 86.5 kg

DRUGS (6)
  1. TRUVADA [Suspect]
     Indication: HIV INFECTION
     Route: 048
     Dates: start: 20080430
  2. KALETRA [Concomitant]
     Indication: HIV INFECTION
     Route: 048
     Dates: start: 20080430
  3. FUZEON [Concomitant]
     Indication: HIV INFECTION
     Route: 058
     Dates: start: 20080430
  4. ROVALCYTE [Concomitant]
     Indication: CYTOMEGALOVIRUS INFECTION
     Route: 048
     Dates: start: 20080426
  5. BACTRIM [Concomitant]
     Indication: PNEUMOCYSTIS JIROVECI PNEUMONIA
     Route: 048
     Dates: start: 20080325
  6. AZADOSE [Concomitant]
     Indication: OPPORTUNISTIC INFECTION PROPHYLAXIS
     Dates: start: 20080414

REACTIONS (3)
  - GENERAL PHYSICAL HEALTH DETERIORATION [None]
  - NEUTROPENIA [None]
  - VOMITING [None]
